FAERS Safety Report 11434395 (Version 1)
Quarter: 2015Q3

REPORT INFORMATION
  Report Type: Report from Study
  Country: US (occurrence: US)
  Receive Date: 20150831
  Receipt Date: 20150831
  Transmission Date: 20151125
  Serious: Yes (Hospitalization)
  Sender: FDA-Public Use
  Company Number: US-SA-2015SA129377

PATIENT
  Age: 50 Year
  Sex: Male
  Weight: 73.8 kg

DRUGS (14)
  1. ONDANSETRON [Concomitant]
     Active Substance: ONDANSETRON
     Dosage: EVERY 6 HOUR WHEN NEEDED
     Route: 048
  2. SENNA [Concomitant]
     Active Substance: SENNA LEAF\SENNOSIDES\SENNOSIDES A AND B
     Route: 048
  3. BISACODYL. [Concomitant]
     Active Substance: BISACODYL
     Route: 054
  4. THIAMINE. [Concomitant]
     Active Substance: THIAMINE
     Route: 048
  5. 5-FU [Suspect]
     Active Substance: FLUOROURACIL
     Indication: COLON CANCER
     Route: 041
     Dates: start: 20150807, end: 20150807
  6. FOLIC ACID. [Concomitant]
     Active Substance: FOLIC ACID
     Route: 048
  7. 5-FU [Suspect]
     Active Substance: FLUOROURACIL
     Indication: COLON CANCER
     Route: 040
     Dates: start: 20150807, end: 20150807
  8. METOCLOPRAMIDE. [Concomitant]
     Active Substance: METOCLOPRAMIDE
     Dosage: NOT TAKEN IF CONSTIPATED
     Route: 048
  9. AFLIBERCEPT [Suspect]
     Active Substance: AFLIBERCEPT
     Indication: COLON CANCER
     Route: 042
     Dates: start: 20150807, end: 20150807
  10. FOLINIC ACID [Suspect]
     Active Substance: LEUCOVORIN
     Indication: COLON CANCER
     Route: 042
     Dates: start: 20150807, end: 20150807
  11. OXALIPLATIN. [Suspect]
     Active Substance: OXALIPLATIN
     Indication: COLON CANCER
     Route: 042
     Dates: start: 20150807, end: 20150807
  12. DOCUSATE [Concomitant]
     Active Substance: DOCUSATE
     Route: 048
  13. MORPHINE [Concomitant]
     Active Substance: MORPHINE
     Dosage: EVERY 4 HOUR IF NEEDED
     Route: 048
  14. MORPHINE [Concomitant]
     Active Substance: MORPHINE
     Route: 048

REACTIONS (2)
  - Nausea [Unknown]
  - Hypertension [Unknown]

NARRATIVE: CASE EVENT DATE: 20150809
